FAERS Safety Report 13203026 (Version 10)
Quarter: 2018Q2

REPORT INFORMATION
  Report Type: Spontaneous
  Country: US (occurrence: US)
  Receive Date: 20170209
  Receipt Date: 20180427
  Transmission Date: 20180711
  Serious: Yes (Other)
  Sender: FDA-Public Use
  Company Number: US-PFIZER INC-2016481109

PATIENT
  Age: 69 Year
  Sex: Female
  Weight: 79 kg

DRUGS (2)
  1. XELJANZ [Suspect]
     Active Substance: TOFACITINIB CITRATE
     Indication: RHEUMATOID ARTHRITIS
     Dosage: 5 MG, 2X/DAY
     Route: 048
     Dates: start: 2015
  2. XELJANZ [Suspect]
     Active Substance: TOFACITINIB CITRATE
     Dosage: 11 MG, 1X/DAY
     Route: 048
     Dates: start: 20180227

REACTIONS (10)
  - Pyrexia [Unknown]
  - Tooth abscess [Unknown]
  - Condition aggravated [Recovering/Resolving]
  - Intentional product use issue [Unknown]
  - Lower respiratory tract infection [Recovered/Resolved]
  - Lethargy [Unknown]
  - Drug ineffective [Unknown]
  - Malaise [Unknown]
  - Arthralgia [Unknown]
  - Joint swelling [Unknown]

NARRATIVE: CASE EVENT DATE: 201711
